FAERS Safety Report 6192715-2 (Version None)
Quarter: 2009Q2

REPORT INFORMATION
  Report Type: 
  Country: None (occurrence: None)
  Receive Date: 20090518
  Receipt Date: 20090506
  Transmission Date: 20091009
  Serious: Yes (Hospitalization)
  Sender: FDA-Public Use
  Company Number: AR-ROCHE-627777

PATIENT
  Sex: Male

DRUGS (8)
  1. MIRCERA [Suspect]
     Indication: MYELOFIBROSIS
     Route: 058
     Dates: start: 20090227
  2. MIRCERA [Suspect]
     Dosage: FREQUENCY: EVERY 30 DAYS
     Route: 058
     Dates: start: 20090114
  3. MIRCERA [Suspect]
     Route: 058
     Dates: start: 20090129
  4. MIRCERA [Suspect]
     Route: 058
     Dates: start: 20090328, end: 20090328
  5. MIRCERA [Suspect]
     Route: 058
  6. IRON [Concomitant]
     Dosage: IRON TREATMENT
     Dates: start: 19980101, end: 19990101
  7. EPREX [Concomitant]
     Dates: start: 20080101
  8. HEMAX [Concomitant]
     Dates: start: 20080101

REACTIONS (8)
  - ANAEMIA [None]
  - CARDIAC FAILURE [None]
  - HYPOTENSION [None]
  - OEDEMA PERIPHERAL [None]
  - OLIGURIA [None]
  - PLEURAL EFFUSION [None]
  - RENAL FAILURE [None]
  - TACHYCARDIA [None]
